FAERS Safety Report 13161277 (Version 2)
Quarter: 2017Q1

REPORT INFORMATION
  Report Type: Spontaneous
  Country: JP (occurrence: JP)
  Receive Date: 20170130
  Receipt Date: 20170210
  Transmission Date: 20170428
  Serious: Yes (Other)
  Sender: FDA-Public Use
  Company Number: JP-ROCHE-1885641

PATIENT
  Age: 2 Year
  Sex: Male
  Weight: 16.9 kg

DRUGS (4)
  1. TAMIFLU [Suspect]
     Active Substance: OSELTAMIVIR PHOSPHATE
     Indication: INFLUENZA
     Route: 048
     Dates: start: 20170117, end: 20170119
  2. MUCODYNE [Concomitant]
     Active Substance: CARBOCYSTEINE
     Dosage: AMOUNT OF 1 ADMINISTRATION: 0.3(UNIT UNCERTAINTY)
     Route: 048
     Dates: start: 20170116
  3. MEPTIN [Concomitant]
     Active Substance: PROCATEROL HYDROCHLORIDE
     Dosage: AMOUNT OF 1 ADMINISTRATION: 0.26 (UNIT UNCERTAINTY)
     Route: 048
     Dates: start: 20170116
  4. NIPOLAZIN [Concomitant]
     Dosage: AMOUNT OF 1 ADMINISTRATION: 0.13 (UNIT UNCERTAINTY)
     Route: 048
     Dates: start: 20170116

REACTIONS (1)
  - Agitation [Recovered/Resolved]

NARRATIVE: CASE EVENT DATE: 20170117
